FAERS Safety Report 4890327-1 (Version None)
Quarter: 2005Q4

REPORT INFORMATION
  Report Type: 
  Country: None (occurrence: None)
  Receive Date: 20051220
  Receipt Date: 20050926
  Transmission Date: 20060501
  Serious: Yes (Other)
  Sender: FDA-Public Use
  Company Number: 419156

PATIENT
  Age: 70 Year
  Sex: Female

DRUGS (9)
  1. BONIVA [Suspect]
     Indication: OSTEOPOROSIS
     Dosage: 150 MG 1 PER MONTH ORAL
     Route: 048
     Dates: start: 20050814, end: 20050912
  2. ACIPHEX (RIBEPRAZOLE SODIUM) [Concomitant]
  3. SYNTHROID (LEVOTHYROXINE0 [Concomitant]
  4. FLONASE [Concomitant]
  5. CLARITIN [Concomitant]
  6. ACETAMINOPHEN [Concomitant]
  7. ADVIL [Concomitant]
  8. MULTIVITAMIN [Concomitant]
  9. CALCIUM SUPPLEMENTS (CALCIUM) [Concomitant]

REACTIONS (3)
  - DYSPEPSIA [None]
  - ERUCTATION [None]
  - HAEMATOCHEZIA [None]
